FAERS Safety Report 10488443 (Version 1)
Quarter: 2014Q4

REPORT INFORMATION
  Report Type: Spontaneous
  Country: US (occurrence: None)
  Receive Date: 20141001
  Receipt Date: 20141001
  Transmission Date: 20150528
  Serious: Yes (Life-Threatening)
  Sender: FDA-Public Use
  Company Number: None

PATIENT
  Age: 74 Year
  Sex: Female
  Weight: 72.5 kg

DRUGS (10)
  1. ASPIRIN. [Concomitant]
     Active Substance: ASPIRIN
  2. CODEINE-GUAIFENESIN [Concomitant]
     Active Substance: CODEINE PHOSPHATE\GUAIFENESIN
  3. HEPARIN [Concomitant]
     Active Substance: HEPARIN SODIUM
  4. LOPERAMIDE [Concomitant]
     Active Substance: LOPERAMIDE
  5. CEFTAROLINE FOSAMIL [Suspect]
     Active Substance: CEFTAROLINE FOSAMIL
     Indication: CELLULITIS
     Route: 042
     Dates: start: 20140811, end: 20140912
  6. FUROSEMIDE. [Concomitant]
     Active Substance: FUROSEMIDE
  7. BENZONATATE. [Concomitant]
     Active Substance: BENZONATATE
  8. IPRATROPIUM-ALBUTEROL [Concomitant]
  9. FLUOXETINE [Concomitant]
     Active Substance: FLUOXETINE\FLUOXETINE HYDROCHLORIDE
  10. POTASSIUM CHLORIDE. [Concomitant]
     Active Substance: POTASSIUM CHLORIDE

REACTIONS (1)
  - Haemolytic anaemia [None]

NARRATIVE: CASE EVENT DATE: 20140812
